FAERS Safety Report 8391706-0 (Version None)
Quarter: 2012Q1

REPORT INFORMATION
  Report Type: 
  Country: None (occurrence: None)
  Receive Date: 20120323
  Receipt Date: 20110310
  Transmission Date: 20120608
  Serious: Yes (Other)
  Sender: FDA-Public Use
  Company Number: 163-21880-11031417

PATIENT
  Age: 60 Year
  Sex: Female

DRUGS (4)
  1. VICODIN [Concomitant]
  2. VITAMIN B-12 (CYANOCOBALAMIN) (UNKNOWN) [Concomitant]
  3. REVLIMID [Suspect]
     Indication: MULTIPLE MYELOMA
     Dosage: 15 MG, DAILY 21/28 DAYS, PO
     Route: 048
     Dates: start: 20081101, end: 20110201
  4. PROZAC [Concomitant]

REACTIONS (1)
  - NEUROPATHY PERIPHERAL [None]
